FAERS Safety Report 13437621 (Version 1)
Quarter: 2017Q2

REPORT INFORMATION
  Report Type: Spontaneous
  Country: US (occurrence: US)
  Receive Date: 20170412
  Receipt Date: 20170412
  Transmission Date: 20170830
  Serious: No
  Sender: FDA-Public Use
  Company Number: US-SA-2016SA226892

PATIENT
  Sex: Male

DRUGS (1)
  1. ALLEGRA ALLERGY [Suspect]
     Active Substance: FEXOFENADINE HYDROCHLORIDE
     Indication: SINUS HEADACHE
     Dosage: PRESCIBED DOSE 1DF/DAY BUT TOOK ANOTHER HALF A PILL THROUGH THE DAY.
     Route: 048

REACTIONS (1)
  - Therapeutic response decreased [Unknown]
